FAERS Safety Report 5132176-5 (Version None)
Quarter: 2006Q4

REPORT INFORMATION
  Report Type: 
  Country: None (occurrence: None)
  Receive Date: 20061017
  Receipt Date: 20061002
  Transmission Date: 20070319
  Serious: Yes (Other)
  Sender: FDA-Public Use
  Company Number: CHPA2006US09880

PATIENT
  Age: 63 Year
  Sex: Female

DRUGS (3)
  1. EXCEDRIN (MIGRAINE) [Suspect]
     Indication: MIGRAINE
     Dosage: 1 DF, QD, ORAL
     Route: 048
     Dates: start: 20040101, end: 20060909
  2. LEXAPRO [Suspect]
     Indication: ANXIETY
     Dosage: 5 MG, QD, ORAL
     Route: 048
     Dates: start: 20060904
  3. PRAVACHOL [Concomitant]

REACTIONS (2)
  - DIZZINESS [None]
  - DRUG ABUSER [None]
